FAERS Safety Report 20890285 (Version 1)
Quarter: 2022Q2

REPORT INFORMATION
  Report Type: Other
  Country: FR (occurrence: FR)
  Receive Date: 20220530
  Receipt Date: 20220530
  Transmission Date: 20220721
  Serious: Yes (Other)
  Sender: FDA-Public Use
  Company Number: FR-DEXPHARM-20220797

PATIENT
  Age: 67 Year
  Sex: Female

DRUGS (6)
  1. IOMEPROL [Interacting]
     Active Substance: IOMEPROL
  2. OMEPRAZOLE [Interacting]
     Active Substance: OMEPRAZOLE
  3. PANTOPRAZOLE [Interacting]
     Active Substance: PANTOPRAZOLE
  4. LANSOPRAZOLE [Concomitant]
     Active Substance: LANSOPRAZOLE
  5. RABEPRAZOLE [Concomitant]
     Active Substance: RABEPRAZOLE
  6. ESOMEPRAZOLE [Concomitant]
     Active Substance: ESOMEPRAZOLE

REACTIONS (2)
  - Drug reaction with eosinophilia and systemic symptoms [Unknown]
  - Drug interaction [Unknown]
